FAERS Safety Report 17470767 (Version 2)
Quarter: 2020Q2

REPORT INFORMATION
  Report Type: Spontaneous
  Country: US (occurrence: US)
  Receive Date: 20200227
  Receipt Date: 20200417
  Transmission Date: 20200713
  Serious: Yes (Death)
  Sender: FDA-Public Use
  Company Number: US-VIFOR (INTERNATIONAL) INC.-VIT-2020-03975

PATIENT
  Age: 62 Year
  Sex: Male
  Weight: 127.12 kg

DRUGS (17)
  1. VELTASSA [Suspect]
     Active Substance: PATIROMER
     Indication: HYPERKALAEMIA
     Route: 048
     Dates: start: 20191130, end: 20191208
  2. ATORVASTATIN [Concomitant]
     Active Substance: ATORVASTATIN
  3. SPIRONOLACTON [Concomitant]
     Active Substance: SPIRONOLACTONE
  4. ALLOPURINOL. [Concomitant]
     Active Substance: ALLOPURINOL
  5. AMLODIPINE [Concomitant]
     Active Substance: AMLODIPINE BESYLATE
  6. FAMOTIDINE. [Concomitant]
     Active Substance: FAMOTIDINE
  7. PANTOPRAZOLE [Concomitant]
     Active Substance: PANTOPRAZOLE
  8. DOXAZOSIN [Concomitant]
     Active Substance: DOXAZOSIN MESYLATE
  9. FUROSEMIDE. [Concomitant]
     Active Substance: FUROSEMIDE
  10. HYDRALAZINE [Concomitant]
     Active Substance: HYDRALAZINE HYDROCHLORIDE
  11. HUMALOG [Concomitant]
     Active Substance: INSULIN LISPRO
  12. XARELTO [Concomitant]
     Active Substance: RIVAROXABAN
  13. ISOSORB [Concomitant]
  14. LANTUS [Concomitant]
     Active Substance: INSULIN GLARGINE
  15. OZEMPIC [Concomitant]
     Active Substance: SEMAGLUTIDE
  16. AMIODARONE [Concomitant]
     Active Substance: AMIODARONE
  17. HYDROCHLOROTH [Concomitant]
     Active Substance: HYDROCHLOROTHIAZIDE

REACTIONS (1)
  - Death [Fatal]

NARRATIVE: CASE EVENT DATE: 20191208
